FAERS Safety Report 5468851-2 (Version None)
Quarter: 2007Q3

REPORT INFORMATION
  Report Type: 
  Country: None (occurrence: None)
  Receive Date: 20070926
  Receipt Date: 20070918
  Transmission Date: 20080115
  Serious: Yes (Other)
  Sender: FDA-Public Use
  Company Number: US-PFIZER INC-2007078271

PATIENT
  Sex: Male
  Weight: 72.6 kg

DRUGS (4)
  1. CELEBREX [Suspect]
     Indication: INFLAMMATION
     Route: 048
  2. METHYLPREDNISOLONE 16MG TAB [Suspect]
     Indication: PAIN IN EXTREMITY
     Route: 048
     Dates: start: 20070912, end: 20070917
  3. TRAZODONE HCL [Concomitant]
  4. VALIUM [Concomitant]

REACTIONS (6)
  - COUGH [None]
  - INSOMNIA [None]
  - NASOPHARYNGITIS [None]
  - OEDEMA PERIPHERAL [None]
  - PAIN [None]
  - PAIN IN EXTREMITY [None]
